FAERS Safety Report 11432573 (Version 18)
Quarter: 2016Q4

REPORT INFORMATION
  Report Type: Spontaneous
  Country: US (occurrence: US)
  Receive Date: 20150828
  Receipt Date: 20161104
  Transmission Date: 20170206
  Serious: Yes (Hospitalization, Other)
  Sender: FDA-Public Use
  Company Number: US-PFIZER INC-2015274757

PATIENT
  Age: 69 Year
  Sex: Male
  Weight: 96 kg

DRUGS (26)
  1. SUTENT [Suspect]
     Active Substance: SUNITINIB MALATE
     Dosage: 50 MG, CYCLIC (AFTERNOON), 28 DAYS ON/14 DAYS OFF
     Dates: start: 20160223
  2. ZOCOR [Concomitant]
     Active Substance: SIMVASTATIN
     Dosage: 20 MG, UNK
     Dates: start: 201610
  3. FLUDROCORTISONE [Concomitant]
     Active Substance: FLUDROCORTISONE
     Dosage: UNK, 1X/DAY (.25 AM)
  4. CARVEDILOL. [Concomitant]
     Active Substance: CARVEDILOL
     Dosage: 6.25 MG, 2X/DAY (MORNING AND EVENING)
     Dates: start: 201307
  5. TUMS [Concomitant]
     Active Substance: CALCIUM CARBONATE
     Dosage: UNK, AS NEEDED
  6. NIZORAL [Concomitant]
     Active Substance: KETOCONAZOLE
     Dosage: DAILY (1 APPLICATION )
     Route: 061
  7. SUTENT [Suspect]
     Active Substance: SUNITINIB MALATE
     Dosage: 50 MG, CYCLIC (28 DAY 14 DAY OFF)
     Dates: start: 2015
  8. CYMBALTA [Concomitant]
     Active Substance: DULOXETINE HYDROCHLORIDE
     Dosage: 1 DF, 1X/DAY (1 IN AM)
  9. NORCO [Concomitant]
     Active Substance: ACETAMINOPHEN\HYDROCODONE BITARTRATE
     Dosage: (HYDROCODONE 5; ACETAMINOPHEN 325)
     Route: 048
  10. CYCLOBENZAPRINE [Concomitant]
     Active Substance: CYCLOBENZAPRINE
     Dosage: UNK
  11. CLINDAMYCIN. [Concomitant]
     Active Substance: CLINDAMYCIN
     Dosage: UNK
  12. FLORINEF ACETATE [Concomitant]
     Active Substance: FLUDROCORTISONE ACETATE
     Dosage: 0.05 MG, DAILY
     Route: 048
  13. VITAMIN B12 [Concomitant]
     Active Substance: CYANOCOBALAMIN
     Dosage: 1000 UG, DAILY
  14. ZOCOR [Concomitant]
     Active Substance: SIMVASTATIN
     Dosage: 40 MG, 1X/DAY (EVERY NIGHT AT BEDTIME)
     Route: 048
  15. CYMBALTA [Concomitant]
     Active Substance: DULOXETINE HYDROCHLORIDE
     Dosage: 60 MG, DAILY (1 CAP )
     Route: 048
     Dates: start: 201507
  16. IBUPROFEN. [Concomitant]
     Active Substance: IBUPROFEN
     Dosage: UNK
  17. COREG [Concomitant]
     Active Substance: CARVEDILOL
     Dosage: 6.25 MG, 2X/DAY
     Route: 048
  18. SUTENT [Suspect]
     Active Substance: SUNITINIB MALATE
     Indication: METASTATIC RENAL CELL CARCINOMA
     Dosage: 50 MG, 1X/DAY (AFTERNOON), 28 DAYS ON/14 DAYS OFF
     Dates: start: 20150729, end: 20160208
  19. SUTENT [Suspect]
     Active Substance: SUNITINIB MALATE
     Dosage: 50 MG, UNK (FOR 28 DAYS)
     Route: 048
     Dates: start: 20161102
  20. SIMVASTATIN. [Concomitant]
     Active Substance: SIMVASTATIN
     Indication: BLOOD CHOLESTEROL ABNORMAL
     Dosage: UNK
     Dates: start: 201101
  21. HYDROCORTISONE. [Concomitant]
     Active Substance: HYDROCORTISONE
     Dosage: 20 MG, AM
     Dates: start: 201307
  22. FLEXERIL [Concomitant]
     Active Substance: CYCLOBENZAPRINE HYDROCHLORIDE
     Dosage: 5 MG, AS NEEDED (ONCE DAILY )
     Route: 048
     Dates: start: 201201
  23. TRIAMCINOLONE [Concomitant]
     Active Substance: TRIAMCINOLONE
     Dosage: UNK
     Route: 048
  24. NORCO [Concomitant]
     Active Substance: ACETAMINOPHEN\HYDROCODONE BITARTRATE
     Dosage: UNK, AS NEEDED
     Dates: start: 201307
  25. HYDROCORTISONE. [Concomitant]
     Active Substance: HYDROCORTISONE
     Dosage: 10 MG, 2X/DAY
     Route: 048
  26. VITAMIN B12 [Concomitant]
     Active Substance: CYANOCOBALAMIN
     Dosage: 1 DF, DAILY
     Route: 048

REACTIONS (36)
  - Pain [Not Recovered/Not Resolved]
  - Diarrhoea [Unknown]
  - Stomatitis [Not Recovered/Not Resolved]
  - Gait disturbance [Not Recovered/Not Resolved]
  - Tinea cruris [Unknown]
  - Tongue discolouration [Not Recovered/Not Resolved]
  - Fatigue [Not Recovered/Not Resolved]
  - Glossitis [Not Recovered/Not Resolved]
  - Pain in extremity [Not Recovered/Not Resolved]
  - Joint stiffness [Not Recovered/Not Resolved]
  - Glossodynia [Not Recovered/Not Resolved]
  - Dyspepsia [Not Recovered/Not Resolved]
  - Increased appetite [Not Recovered/Not Resolved]
  - Pruritus genital [Not Recovered/Not Resolved]
  - Anal pruritus [Not Recovered/Not Resolved]
  - Oral pain [Recovering/Resolving]
  - Dysphagia [Not Recovered/Not Resolved]
  - Lip dry [Not Recovered/Not Resolved]
  - Dysgeusia [Not Recovered/Not Resolved]
  - Heat illness [Unknown]
  - Rash [Not Recovered/Not Resolved]
  - Musculoskeletal stiffness [Not Recovered/Not Resolved]
  - Oral mucosal erythema [Not Recovered/Not Resolved]
  - Anal ulcer [Not Recovered/Not Resolved]
  - Back pain [Not Recovered/Not Resolved]
  - Weight decreased [Recovered/Resolved]
  - Musculoskeletal pain [Not Recovered/Not Resolved]
  - Myalgia [Not Recovered/Not Resolved]
  - Tooth disorder [Recovered/Resolved]
  - Arthritis [Not Recovered/Not Resolved]
  - Exostosis [Recovered/Resolved]
  - Tooth fracture [Recovered/Resolved]
  - Dry mouth [Not Recovered/Not Resolved]
  - Gingival swelling [Recovered/Resolved]
  - Vitamin B12 decreased [Unknown]
  - Increased tendency to bruise [Unknown]

NARRATIVE: CASE EVENT DATE: 2015
